FAERS Safety Report 8342775-5 (Version None)
Quarter: 2012Q2

REPORT INFORMATION
  Report Type: 
  Country: None (occurrence: None)
  Receive Date: 20120503
  Receipt Date: 20120413
  Transmission Date: 20120825
  Serious: Yes (Life-Threatening)
  Sender: FDA-Public Use
  Company Number: 1257752

PATIENT
  Age: 44 Year
  Sex: Female
  Weight: 121 kg

DRUGS (4)
  1. PRECEDEX [Suspect]
     Indication: SLEEP APNOEA SYNDROME
     Dosage: 60 MCG, CONTINUOUS, INTRAVENOUS
     Route: 042
     Dates: start: 20120209
  2. REMIFENTANIL [Concomitant]
  3. NEXIUM [Concomitant]
  4. FENTANYL CITRATE [Concomitant]

REACTIONS (3)
  - CARDIAC ARREST [None]
  - PROCEDURAL COMPLICATION [None]
  - BRADYCARDIA [None]
